FAERS Safety Report 23173233 (Version 2)
Quarter: 2023Q4

REPORT INFORMATION
  Report Type: Spontaneous
  Country: ES (occurrence: ES)
  Receive Date: 20231111
  Receipt Date: 20231208
  Transmission Date: 20240110
  Serious: Yes (Other)
  Sender: FDA-Public Use
  Company Number: ES-SA-2023SA344314

PATIENT
  Age: 58 Year
  Sex: Male
  Weight: 95 kg

DRUGS (5)
  1. ELOCTA [Suspect]
     Active Substance: EFMOROCTOCOG ALFA
     Indication: Factor VIII deficiency
     Dosage: 3000 IU, Q5D
     Route: 065
  2. ELOCTA [Suspect]
     Active Substance: EFMOROCTOCOG ALFA
     Indication: Factor VIII deficiency
     Dosage: 3000 IU, Q5D
     Route: 065
  3. RAMIPRIL [Suspect]
     Active Substance: RAMIPRIL
     Indication: Hypertension
     Route: 065
  4. DOLUTEGRAVIR [Suspect]
     Active Substance: DOLUTEGRAVIR
     Route: 065
  5. INTERFERON [Suspect]
     Active Substance: INTERFERON
     Route: 065

REACTIONS (1)
  - Myocardial infarction [Unknown]
